FAERS Safety Report 10641941 (Version 2)
Quarter: 2015Q2

REPORT INFORMATION
  Report Type: Report from Study
  Country: US (occurrence: US)
  Receive Date: 20141209
  Receipt Date: 20150609
  Transmission Date: 20150821
  Serious: Yes (Other)
  Sender: FDA-Public Use
  Company Number: US-GILEAD-2014-0125910

PATIENT
  Age: 57 Year
  Sex: Male

DRUGS (3)
  1. AMBRISENTAN [Suspect]
     Active Substance: AMBRISENTAN
     Indication: PULMONARY ARTERIAL HYPERTENSION
     Dosage: 10 MG, UNK
     Route: 065
     Dates: start: 20141008
  2. GLUCOTROL [Concomitant]
     Active Substance: GLIPIZIDE
     Dosage: 5 MG, QD
     Route: 048
  3. JANUVIA [Concomitant]
     Active Substance: SITAGLIPTIN PHOSPHATE
     Dosage: 50 MG, QD

REACTIONS (1)
  - Diabetic complication [Unknown]
